FAERS Safety Report 12566867 (Version 1)
Quarter: 2016Q3

REPORT INFORMATION
  Report Type: Spontaneous
  Country: US (occurrence: US)
  Receive Date: 20160718
  Receipt Date: 20160718
  Transmission Date: 20161109
  Serious: No
  Sender: FDA-Public Use
  Company Number: US-TAKEDA-2016TUS010870

PATIENT

DRUGS (1)
  1. ENTYVIO [Suspect]
     Active Substance: VEDOLIZUMAB
     Indication: PRODUCT USED FOR UNKNOWN INDICATION
     Route: 042

REACTIONS (9)
  - Sinusitis [Recovered/Resolved]
  - Nausea [Unknown]
  - Haemorrhage [Recovered/Resolved]
  - Pyrexia [Unknown]
  - Drug administered to patient of inappropriate age [Unknown]
  - Diarrhoea [Unknown]
  - Flatulence [Unknown]
  - Anal incontinence [Unknown]
  - Constipation [Unknown]
